FAERS Safety Report 15360769 (Version 2)
Quarter: 2018Q3

REPORT INFORMATION
  Report Type: Report from Study
  Country: None (occurrence: US)
  Receive Date: 20180907
  Receipt Date: 20180908
  Transmission Date: 20181010
  Serious: Yes (Hospitalization)
  Sender: FDA-Public Use
  Company Number: US-ABBVIE-18K-163-2468269-00

PATIENT
  Age: 46 Year
  Sex: Male
  Weight: 73.55 kg

DRUGS (4)
  1. 6?MP [Concomitant]
     Active Substance: MERCAPTOPURINE
     Indication: COLITIS ULCERATIVE
  2. HUMIRA [Suspect]
     Active Substance: ADALIMUMAB
     Indication: COLITIS ULCERATIVE
     Route: 058
     Dates: start: 20180819, end: 20180902
  3. IRON [Concomitant]
     Active Substance: IRON
     Indication: ANAEMIA
  4. MESALAMINE. [Concomitant]
     Active Substance: MESALAMINE
     Indication: COLITIS ULCERATIVE

REACTIONS (10)
  - Blood potassium decreased [Recovering/Resolving]
  - Colitis [Recovering/Resolving]
  - Chronic inflammatory demyelinating polyradiculoneuropathy [Unknown]
  - Nausea [Recovering/Resolving]
  - Clostridium difficile infection [Recovering/Resolving]
  - Liquid product physical issue [Recovering/Resolving]
  - Drug administration error [Not Recovered/Not Resolved]
  - Poor quality drug administered [Not Recovered/Not Resolved]
  - Pancreatitis [Not Recovered/Not Resolved]
  - Pancreatic enzymes increased [Recovered/Resolved]

NARRATIVE: CASE EVENT DATE: 20180819
